FAERS Safety Report 7163134-7 (Version None)
Quarter: 2010Q4

REPORT INFORMATION
  Report Type: 
  Country: None (occurrence: None)
  Receive Date: 20101215
  Receipt Date: 20101214
  Transmission Date: 20110411
  Serious: Yes (Other)
  Sender: FDA-Public Use
  Company Number: US-JNJFOC-20101202043

PATIENT

DRUGS (11)
  1. DOXIL [Suspect]
     Indication: NON-HODGKIN'S LYMPHOMA
     Dosage: ON DAY 1 EVERY 21 DAYS FOR 6 CYCLES
     Route: 042
  2. DOXIL [Suspect]
     Dosage: ON DAY 1 EVERY 21 DAYS
     Route: 042
  3. CYCLOPHOSPHAMIDE [Suspect]
     Indication: NON-HODGKIN'S LYMPHOMA
     Dosage: ON DAY 1 EVERY 21 DAYS FOR 6 CYCLES
     Route: 042
  4. CYCLOPHOSPHAMIDE [Suspect]
     Dosage: ON DAY 1 EVERY 21 DAYS
     Route: 042
  5. VINCRISTINE [Suspect]
     Indication: NON-HODGKIN'S LYMPHOMA
     Dosage: NOT TO EXCEED 2.0 MG TOTAL ON DAY 1 FOR 6 CYCLES
     Route: 042
  6. PREDNISONE [Suspect]
     Indication: NON-HODGKIN'S LYMPHOMA
     Dosage: ON DAYS 1-5 EVERY 21 DAYS FOR 6 CYCLES
     Route: 048
  7. RITUXIMAB [Suspect]
     Indication: NON-HODGKIN'S LYMPHOMA
     Dosage: BEFORE CHOP ON DAY 1 EVERY 21 DAYS FOR 6 CYCLES
     Route: 065
  8. BORTEZOMIB [Suspect]
     Indication: NON-HODGKIN'S LYMPHOMA
     Dosage: INITIAL DOSE REDUCED BY 25% ON DAYS 1 AND 4 OF EACH 21 DAY CYCLE BEFORE R-CHOP FOR 6 CYCLES
     Route: 065
  9. BORTEZOMIB [Suspect]
     Dosage: 0.7 MG/M2, 1.0 MG/M2 AND 1.3 MG/M2 ON DAYS 1 AND 4 OF EACH 21 DAY CYCLE BEFORE R-CHOP FOR 6 CYCLES
     Route: 065
  10. DIPHENHYDRAMINE [Suspect]
     Indication: PREMEDICATION
     Dosage: BEFORE CHOP ON DAY 1 OF EACH CYCLE
     Route: 065
  11. ACETAMINOPHEN [Suspect]
     Indication: PREMEDICATION
     Dosage: BEFORE CHOP ON DAY 1 OF EACH CYCLE
     Route: 065

REACTIONS (1)
  - THROMBOCYTOPENIA [None]
